FAERS Safety Report 6414941-7 (Version None)
Quarter: 2009Q4

REPORT INFORMATION
  Report Type: 
  Country: None (occurrence: None)
  Receive Date: 20091026
  Receipt Date: 20090304
  Transmission Date: 20100525
  Serious: No
  Sender: FDA-Public Use
  Company Number: US-ABBOTT-09P-163-0560853-00

PATIENT
  Sex: Female
  Weight: 59.02 kg

DRUGS (3)
  1. LUPRON DEPOT [Suspect]
     Indication: ENDOMETRIOSIS
     Dosage: UNSURE OF STRENGTH
     Route: 030
     Dates: start: 20090226
  2. IRON [Concomitant]
     Indication: ANAEMIA
     Route: 048
     Dates: end: 20090303
  3. IRON [Concomitant]
     Route: 048
     Dates: start: 20090303

REACTIONS (3)
  - ABDOMINAL PAIN [None]
  - HAEMORRHAGE [None]
  - PYREXIA [None]
